FAERS Safety Report 12476117 (Version 7)
Quarter: 2021Q3

REPORT INFORMATION
  Report Type: Other
  Country: US (occurrence: US)
  Receive Date: 20160617
  Receipt Date: 20210701
  Transmission Date: 20211014
  Serious: Yes (Hospitalization, Other)
  Sender: FDA-Public Use
  Company Number: US-ROCHE-1770591

PATIENT

DRUGS (4)
  1. TRASTUZUMAB. [Suspect]
     Active Substance: TRASTUZUMAB
     Indication: BREAST CANCER METASTATIC
     Dosage: LOADING DOSE
     Route: 042
  2. PACLITAXEL. [Suspect]
     Active Substance: PACLITAXEL
     Indication: BREAST CANCER METASTATIC
     Route: 065
  3. DOCETAXEL. [Suspect]
     Active Substance: DOCETAXEL
     Indication: BREAST CANCER METASTATIC
     Route: 065
  4. TRASTUZUMAB. [Suspect]
     Active Substance: TRASTUZUMAB
     Dosage: OVER 30 MINUTES: MAINTAINANCE DOSE
     Route: 042

REACTIONS (20)
  - Leukopenia [Unknown]
  - Anaemia [Unknown]
  - Alanine aminotransferase increased [Unknown]
  - Aspartate aminotransferase increased [Unknown]
  - Ejection fraction decreased [Unknown]
  - Hypersensitivity [Recovered/Resolved]
  - Neutropenia [Unknown]
  - Pneumonia [Unknown]
  - Rash [Recovered/Resolved]
  - Rash pruritic [Recovered/Resolved]
  - Infusion related reaction [Recovered/Resolved]
  - Allergic cough [Recovered/Resolved]
  - Hypertension [Unknown]
  - Febrile neutropenia [Unknown]
  - Dermatitis [Recovered/Resolved]
  - Pneumonitis [Recovered/Resolved]
  - Cardiomyopathy [Unknown]
  - Dyspnoea [Recovered/Resolved]
  - Headache [Unknown]
  - Congestive cardiomyopathy [Unknown]
